FAERS Safety Report 7345840-4 (Version None)
Quarter: 2011Q1

REPORT INFORMATION
  Report Type: 
  Country: None (occurrence: None)
  Receive Date: 20110311
  Receipt Date: 20110302
  Transmission Date: 20110831
  Serious: No
  Sender: FDA-Public Use
  Company Number: US-BIOGENIDEC-2010BI012200

PATIENT
  Sex: Female

DRUGS (2)
  1. TYSABRI [Suspect]
     Route: 042
     Dates: start: 20100201
  2. TYSABRI [Suspect]
     Indication: MULTIPLE SCLEROSIS
     Route: 042
     Dates: start: 20071105, end: 20080819

REACTIONS (9)
  - MALAISE [None]
  - FEELING HOT [None]
  - FATIGUE [None]
  - FEELING COLD [None]
  - RESTLESSNESS [None]
  - VISUAL IMPAIRMENT [None]
  - PAIN [None]
  - MULTIPLE SCLEROSIS RELAPSE [None]
  - HEADACHE [None]
